FAERS Safety Report 8384482-9 (Version None)
Quarter: 2012Q2

REPORT INFORMATION
  Report Type: 
  Country: None (occurrence: None)
  Receive Date: 20120524
  Receipt Date: 20120516
  Transmission Date: 20120825
  Serious: Yes (Hospitalization)
  Sender: FDA-Public Use
  Company Number: JP-VERTEX PHARMACEUTICALS INC.-AE-2012-004796

PATIENT
  Age: 50 Year
  Sex: Female

DRUGS (9)
  1. RIBAVARIN [Concomitant]
     Route: 048
     Dates: start: 20120216, end: 20120222
  2. ALLOPURINOL [Concomitant]
     Route: 048
     Dates: start: 20120206, end: 20120222
  3. LOXONIN [Concomitant]
  4. JANUVIA [Concomitant]
     Route: 048
  5. TELAVIC (TELAPREVIR) [Suspect]
     Indication: HEPATITIS C
     Route: 048
     Dates: start: 20120202, end: 20120222
  6. RIBAVARIN [Concomitant]
     Indication: HEPATITIS C
     Route: 048
     Dates: start: 20120202, end: 20120215
  7. CYTOTEC [Concomitant]
     Route: 048
  8. PEG-INTRON [Concomitant]
     Route: 058
     Dates: start: 20120202, end: 20120216
  9. RABEPRAZOLE SODIUM [Concomitant]
     Route: 048

REACTIONS (1)
  - BLOOD CREATININE INCREASED [None]
